FAERS Safety Report 6327501-3 (Version None)
Quarter: 2009Q3

REPORT INFORMATION
  Report Type: 
  Country: None (occurrence: None)
  Receive Date: 20090818
  Receipt Date: 20090629
  Transmission Date: 20100115
  Serious: No
  Sender: FDA-Public Use
  Company Number: WAES 0907USA00028

PATIENT
  Age: 55 Year
  Sex: Female

DRUGS (2)
  1. JANUVIA [Suspect]
     Indication: DIABETES MELLITUS
     Dosage: PO
  2. INJ CORTICOSTEROIDS (UNSPECIFIED) UNK [Suspect]

REACTIONS (1)
  - BLOOD GLUCOSE INCREASED [None]
